FAERS Safety Report 18579407 (Version 2)
Quarter: 2022Q2

REPORT INFORMATION
  Report Type: Report from Study
  Country: GB (occurrence: GB)
  Receive Date: 20201204
  Receipt Date: 20220624
  Transmission Date: 20220721
  Serious: Yes (Death, Other)
  Sender: FDA-Public Use
  Company Number: GB-TAKEDA-2020TUS053943

PATIENT
  Age: 8 Year
  Sex: Male

DRUGS (17)
  1. VELAGLUCERASE ALFA [Suspect]
     Active Substance: VELAGLUCERASE ALFA
     Indication: Gaucher^s disease
     Dosage: UNK
     Route: 065
  2. AMOXICILLIN\CLAVULANATE POTASSIUM [Concomitant]
     Active Substance: AMOXICILLIN\CLAVULANATE POTASSIUM
     Indication: Infection
     Dosage: UNK
     Route: 065
     Dates: end: 201311
  3. AMOXICILLIN\CLAVULANATE POTASSIUM [Concomitant]
     Active Substance: AMOXICILLIN\CLAVULANATE POTASSIUM
     Dosage: UNK
     Route: 048
     Dates: start: 20140313, end: 20140313
  4. ALBUTEROL [Concomitant]
     Active Substance: ALBUTEROL
     Dosage: UNK
     Route: 065
     Dates: end: 201311
  5. DEXAMETHASONE [Concomitant]
     Active Substance: DEXAMETHASONE
     Indication: Hypersensitivity
     Dosage: UNK
     Route: 065
     Dates: end: 201311
  6. AMIKACIN [Concomitant]
     Active Substance: AMIKACIN
     Indication: Pyrexia
     Dosage: 215 MILLIGRAM
     Route: 065
     Dates: end: 20140308
  7. ZANAMIVIR [Concomitant]
     Active Substance: ZANAMIVIR
     Dosage: 150 MILLIGRAM, BID
     Route: 065
  8. BECLOMETHASONE DIPROPIONATE [Concomitant]
     Active Substance: BECLOMETHASONE DIPROPIONATE
     Dosage: 100 MICROGRAM
     Route: 065
  9. LANSOPRAZOLE [Concomitant]
     Active Substance: LANSOPRAZOLE
     Dosage: UNK
     Route: 065
  10. RANITIDINE [Concomitant]
     Active Substance: RANITIDINE
     Dosage: 30 MILLIGRAM, BID
     Route: 065
  11. AZITHROMYCIN [Concomitant]
     Active Substance: AZITHROMYCIN
     Indication: Cough
     Dosage: 4.5 MILLILITER, 3/WEEK
     Route: 065
  12. SYTRON [Concomitant]
     Indication: Anaemia
     Dosage: UNK
     Route: 065
     Dates: start: 201302, end: 201305
  13. AUGMENTIN [Concomitant]
     Active Substance: AMOXICILLIN\CLAVULANATE POTASSIUM
     Indication: Lower respiratory tract infection
     Dosage: UNK
     Route: 065
     Dates: start: 20131129, end: 201312
  14. PIPERACILLIN [Concomitant]
     Active Substance: PIPERACILLIN
     Indication: Pyrexia
     Dosage: 1080 MILLIGRAM, QID
     Route: 065
     Dates: start: 20140306, end: 20140307
  15. MEROPENEM [Concomitant]
     Active Substance: MEROPENEM
     Dosage: 215 MILLIGRAM, TID
     Route: 065
     Dates: start: 20140307, end: 20140310
  16. OSELTAMIVIR [Concomitant]
     Active Substance: OSELTAMIVIR
     Dosage: 30 MILLIGRAM, QD
     Route: 048
     Dates: start: 20140307, end: 20140308
  17. CIPROFLOXACIN [Concomitant]
     Active Substance: CIPROFLOXACIN
     Dosage: 215 MILLIGRAM, QD
     Route: 065
     Dates: start: 20140313, end: 20140313

REACTIONS (3)
  - Brain injury [Fatal]
  - Epilepsy [Fatal]
  - Gaucher^s disease [Fatal]

NARRATIVE: CASE EVENT DATE: 20200124
